FAERS Safety Report 4323240-9 (Version None)
Quarter: 2004Q1

REPORT INFORMATION
  Report Type: 
  Country: None (occurrence: None)
  Receive Date: 20040322
  Receipt Date: 20040311
  Transmission Date: 20041129
  Serious: Yes (Life-Threatening, Other)
  Sender: FDA-Public Use
  Company Number: 2003-03305

PATIENT
  Age: 24 Year
  Sex: Female

DRUGS (1)
  1. FERRLECIT [Suspect]
     Indication: ANAEMIA
     Dosage: 62.5 MG UNDILUTED, INTRAVENOUS
     Route: 042
     Dates: start: 20030923, end: 20030923

REACTIONS (5)
  - COMPLICATIONS OF MATERNAL EXPOSURE TO THERAPEUTIC DRUGS [None]
  - CYANOSIS [None]
  - LARYNGEAL OEDEMA [None]
  - MEDICATION ERROR [None]
  - RASH ERYTHEMATOUS [None]
